FAERS Safety Report 17845088 (Version 2)
Quarter: 2020Q2

REPORT INFORMATION
  Report Type: Spontaneous
  Country: IT (occurrence: IT)
  Receive Date: 20200601
  Receipt Date: 20200604
  Transmission Date: 20200714
  Serious: Yes (Disabling)
  Sender: FDA-Public Use
  Company Number: IT-UCBSA-2020021442

PATIENT
  Age: 36 Year
  Sex: Female
  Weight: 45 kg

DRUGS (2)
  1. XYZAL [Suspect]
     Active Substance: LEVOCETIRIZINE DIHYDROCHLORIDE
     Indication: CONJUNCTIVITIS ALLERGIC
     Dosage: 5 MILLIGRAM, DAILY
     Route: 048
     Dates: start: 20200514, end: 20200517
  2. TOBRADEX [Concomitant]
     Active Substance: DEXAMETHASONE\TOBRAMYCIN
     Indication: CONJUNCTIVITIS ALLERGIC
     Route: 031

REACTIONS (4)
  - Abdominal pain [Recovered/Resolved with Sequelae]
  - Intentional product misuse [Unknown]
  - Dyschezia [Recovered/Resolved with Sequelae]
  - Dysuria [Recovered/Resolved with Sequelae]

NARRATIVE: CASE EVENT DATE: 20200514
